FAERS Safety Report 14304163 (Version 1)
Quarter: 2017Q4

REPORT INFORMATION
  Report Type: Spontaneous
  Country: AU (occurrence: AU)
  Receive Date: 20171219
  Receipt Date: 20171219
  Transmission Date: 20180321
  Serious: Yes (Disabling)
  Sender: FDA-Public Use
  Company Number: AU-OTSUKA-DJ20070886

PATIENT
  Age: 17 Year
  Sex: Male

DRUGS (5)
  1. LEXAPRO [Concomitant]
     Active Substance: ESCITALOPRAM OXALATE
     Indication: ANXIETY
     Dosage: 10 MG, QD
     Route: 048
  2. RISPERIDONE. [Concomitant]
     Active Substance: RISPERIDONE
     Indication: MOOD SWINGS
     Dosage: LAST GIVEN ON 5-APR-2007
     Route: 048
     Dates: end: 20070405
  3. LEXAPRO [Concomitant]
     Active Substance: ESCITALOPRAM OXALATE
     Indication: DEPRESSION
  4. ABILIFY [Suspect]
     Active Substance: ARIPIPRAZOLE
     Indication: AUTISM SPECTRUM DISORDER
     Dosage: 5 MG, UNK
     Route: 048
     Dates: start: 20070405
  5. ABILIFY [Suspect]
     Active Substance: ARIPIPRAZOLE
     Indication: MOOD SWINGS

REACTIONS (11)
  - Somnolence [Unknown]
  - Bedridden [Unknown]
  - Fatigue [Recovered/Resolved]
  - Feeling of body temperature change [Recovered/Resolved]
  - Agitation [Unknown]
  - Muscular weakness [Unknown]
  - Photopsia [Recovered/Resolved]
  - Disturbance in attention [Recovered/Resolved]
  - Emotional distress [Recovered/Resolved]
  - Nausea [Unknown]
  - Dizziness [Unknown]

NARRATIVE: CASE EVENT DATE: 200704
